FAERS Safety Report 6539384-7 (Version None)
Quarter: 2010Q1

REPORT INFORMATION
  Report Type: 
  Country: None (occurrence: None)
  Receive Date: 20100115
  Receipt Date: 20100108
  Transmission Date: 20100710
  Serious: Yes (Hospitalization, Other)
  Sender: FDA-Public Use
  Company Number: FR-JNJFOC-20060806296

PATIENT
  Age: 50 Year
  Sex: Male
  Weight: 89 kg

DRUGS (5)
  1. REMICADE [Suspect]
     Route: 042
  2. REMICADE [Suspect]
     Indication: UVEITIS
     Dosage: 4TH INFUSION
     Route: 042
  3. REMICADE [Suspect]
     Indication: ANKYLOSING SPONDYLITIS
     Dosage: 9 INFUSIONS
     Route: 042
  4. VOLTAREN [Concomitant]
  5. CHIBROCADRON [Concomitant]
     Route: 047

REACTIONS (2)
  - CUTANEOUS LEISHMANIASIS [None]
  - HEPATOSPLENOMEGALY [None]
